FAERS Safety Report 6505278-6 (Version None)
Quarter: 2009Q4

REPORT INFORMATION
  Report Type: 
  Country: None (occurrence: None)
  Receive Date: 20091218
  Receipt Date: 20091208
  Transmission Date: 20100525
  Serious: Yes (Hospitalization)
  Sender: FDA-Public Use
  Company Number: FR-BAYER-200942227GPV

PATIENT
  Age: 47 Year
  Sex: Male

DRUGS (17)
  1. MABCAMPATH [Suspect]
     Indication: CHRONIC LYMPHOCYTIC LEUKAEMIA
     Route: 042
     Dates: start: 20090824
  2. MABCAMPATH [Suspect]
     Route: 042
     Dates: start: 20090825
  3. MABCAMPATH [Suspect]
     Route: 042
     Dates: start: 20090826
  4. MABCAMPATH [Suspect]
     Route: 042
     Dates: start: 20090826
  5. MABCAMPATH [Suspect]
     Route: 058
  6. TAHOR [Concomitant]
     Indication: HYPERCHOLESTEROLAEMIA
     Route: 048
  7. AVLOCARDYL [Concomitant]
     Indication: HYPERTENSION
     Route: 048
  8. ALDACTONE [Concomitant]
     Route: 048
  9. EFFERALGAN [Concomitant]
     Indication: PROPHYLAXIS
     Dosage: 3 G PER DAY BETWEEN CYCLES
     Route: 065
  10. SERESTA [Concomitant]
     Dosage: UNIT DOSE: 50 MG
     Route: 048
  11. BACTRIM DS [Concomitant]
     Indication: PROPHYLAXIS
     Route: 048
     Dates: start: 20090824
  12. BACTRIM DS [Concomitant]
     Route: 048
     Dates: start: 20040901, end: 20050101
  13. ZELITREX [Concomitant]
     Indication: PROPHYLAXIS
     Dates: start: 20040901, end: 20050101
  14. ZELITREX [Concomitant]
     Dates: start: 20090824
  15. SOLU-MEDROL [Concomitant]
     Indication: PREMEDICATION
     Route: 042
     Dates: start: 20090824
  16. POLARAMINE [Concomitant]
     Indication: PREMEDICATION
     Route: 042
     Dates: start: 20090824
  17. PERFALGAN [Concomitant]
     Indication: PROPHYLAXIS
     Route: 042

REACTIONS (5)
  - ARTERIAL THROMBOSIS LIMB [None]
  - INDURATION [None]
  - INTERMITTENT CLAUDICATION [None]
  - PAIN IN EXTREMITY [None]
  - PERIPHERAL ISCHAEMIA [None]
